FAERS Safety Report 6928856-9 (Version None)
Quarter: 2010Q3

REPORT INFORMATION
  Report Type: 
  Country: None (occurrence: None)
  Receive Date: 20100817
  Receipt Date: 20100805
  Transmission Date: 20110219
  Serious: Yes (Hospitalization)
  Sender: FDA-Public Use
  Company Number: FR-SANOFI-AVENTIS-A02200902403

PATIENT
  Age: 49 Year
  Sex: Male

DRUGS (3)
  1. BETAXOLOL HYDROCHLORIDE [Suspect]
     Dosage: UNIT DOSE: 20 MG
     Route: 048
     Dates: start: 19990101, end: 20090819
  2. BETAXOLOL HYDROCHLORIDE [Suspect]
  3. CORTICOSTEROIDS [Concomitant]
     Indication: PRODUCT USED FOR UNKNOWN INDICATION

REACTIONS (3)
  - AUTOIMMUNE HEPATITIS [None]
  - HEPATOCELLULAR INJURY [None]
  - JAUNDICE [None]
